FAERS Safety Report 5604564-1 (Version None)
Quarter: 2008Q1

REPORT INFORMATION
  Report Type: 
  Country: None (occurrence: None)
  Receive Date: 20080128
  Receipt Date: 20071211
  Transmission Date: 20080703
  Serious: Yes (Other)
  Sender: FDA-Public Use
  Company Number: PT-MERCK-0712PRT00005

PATIENT
  Age: 31 Year
  Sex: Female
  Weight: 64 kg

DRUGS (4)
  1. SINGULAIR [Suspect]
     Indication: RHINITIS ALLERGIC
     Route: 048
     Dates: start: 20070106, end: 20070221
  2. DROSPIRENONE AND ETHINYL ESTRADIOL [Suspect]
     Indication: CONTRACEPTION
     Route: 048
     Dates: start: 20050901, end: 20070221
  3. FLUTICASONE PROPIONATE [Concomitant]
     Indication: ASTHMA
     Dates: start: 20061001, end: 20070221
  4. TERBUTALINE SULFATE [Concomitant]
     Indication: ASTHMA
     Dates: end: 20070221

REACTIONS (2)
  - DRUG EXPOSURE DURING PREGNANCY [None]
  - DRUG INTERACTION [None]
